FAERS Safety Report 20621669 (Version 1)
Quarter: 2022Q1

REPORT INFORMATION
  Report Type: Spontaneous
  Country: RU (occurrence: None)
  Receive Date: 20220322
  Receipt Date: 20220322
  Transmission Date: 20220423
  Serious: Yes (Hospitalization)
  Sender: FDA-Public Use
  Company Number: RU-Merck Healthcare KGaA-9307691

PATIENT
  Age: 2 Year
  Sex: Male

DRUGS (1)
  1. EUTHYROX [Suspect]
     Active Substance: LEVOTHYROXINE SODIUM
     Indication: Accidental exposure to product
     Route: 048
     Dates: start: 20220304, end: 20220304

REACTIONS (1)
  - Nystagmus [Recovered/Resolved]

NARRATIVE: CASE EVENT DATE: 20220304
